FAERS Safety Report 4303253-3 (Version None)
Quarter: 2004Q1

REPORT INFORMATION
  Report Type: 
  Country: None (occurrence: None)
  Receive Date: 20040224
  Receipt Date: 20040120
  Transmission Date: 20041129
  Serious: Yes (Hospitalization)
  Sender: FDA-Public Use
  Company Number: GB-BRISTOL-MYERS SQUIBB COMPANY-12482832

PATIENT
  Age: 37 Year
  Sex: Female

DRUGS (8)
  1. PACLITAXEL [Suspect]
     Indication: OVARIAN CANCER
     Route: 042
     Dates: start: 20030703, end: 20030703
  2. CARBOPLATIN [Suspect]
     Indication: OVARIAN CANCER
     Route: 042
     Dates: start: 20030703, end: 20030703
  3. GEMCITABINE [Suspect]
     Indication: OVARIAN CANCER
     Route: 042
     Dates: start: 20030703, end: 20030703
  4. CO-DANTHRAMER [Concomitant]
     Dosage: 25/200 X 2
  5. DICLOFENAC [Concomitant]
  6. ACETAMINOPHEN [Concomitant]
  7. METOCLOPRAMIDE [Concomitant]
  8. CO-PROXAMOL [Concomitant]
     Dosage: 32.5/325

REACTIONS (3)
  - BACTERAEMIA [None]
  - INTESTINAL OBSTRUCTION [None]
  - NEUTROPENIA [None]
